FAERS Safety Report 5723941-1 (Version None)
Quarter: 2008Q2

REPORT INFORMATION
  Report Type: 
  Country: None (occurrence: None)
  Receive Date: 20080430
  Receipt Date: 20080425
  Transmission Date: 20081010
  Serious: Yes (Death)
  Sender: FDA-Public Use
  Company Number: JP-WYE-H03171908

PATIENT
  Sex: Male

DRUGS (13)
  1. AMIODARONE HCL [Suspect]
     Indication: VENTRICULAR TACHYCARDIA
     Route: 042
     Dates: start: 20080301, end: 20080301
  2. AMIODARONE HCL [Suspect]
     Route: 042
     Dates: start: 20080301, end: 20080302
  3. AMIODARONE HCL [Suspect]
     Route: 042
     Dates: start: 20080302, end: 20080302
  4. MAGNESIUM SULFATE [Concomitant]
     Dosage: 2 G (FREQUENCY UNSPECIFIED)
     Route: 042
     Dates: start: 20080301, end: 20080301
  5. DOPAMINE HCL [Concomitant]
     Dosage: 10 (UNITS AND FREQUENCY UNSPECIFIED)
     Route: 042
     Dates: start: 20080301, end: 20080303
  6. UNASYN [Concomitant]
     Dosage: 3 G (FREQUENCY UNSPECIFIED)
     Route: 042
     Dates: start: 20080301, end: 20080302
  7. SILECE [Concomitant]
     Dosage: 1 MG (FREQUENCY UNSPECIFIED)
     Route: 042
     Dates: start: 20080301, end: 20080301
  8. DOBUTREX [Concomitant]
     Dosage: 10 G (FREQUENCY UNSPECIFIED)
     Route: 042
     Dates: start: 20080302, end: 20080302
  9. NORADRENALINE [Concomitant]
     Dosage: 0.25 G (FREQUENCY UNSPECIFIED)
     Route: 042
     Dates: start: 20080302, end: 20080303
  10. ASPIRIN [Concomitant]
     Indication: VENTRICULAR TACHYCARDIA
     Dosage: 200 MG (FREQUENCY UNSPECIFIED)
     Route: 048
     Dates: start: 20080301, end: 20080302
  11. PLAVIX [Concomitant]
     Dosage: 100 MG (FREQUENCY UNSPECIFIED)
     Route: 048
     Dates: start: 20080302, end: 20080302
  12. LIDOCAINE [Concomitant]
     Dosage: 50 MG (FREQUENCY UNSPECIFIED)
     Route: 042
     Dates: start: 20080301, end: 20080301
  13. DOPAMINE HYDROCHLORIDE [Concomitant]
     Dosage: 10 G (FREQUENCY UNSPECIFIED)
     Route: 042
     Dates: start: 20080301, end: 20080303

REACTIONS (2)
  - CARDIAC FAILURE [None]
  - DRUG INEFFECTIVE [None]
